FAERS Safety Report 5521880-2 (Version None)
Quarter: 2007Q4

REPORT INFORMATION
  Report Type: 
  Country: None (occurrence: None)
  Receive Date: 20071120
  Receipt Date: 20071108
  Transmission Date: 20080405
  Serious: Yes (Hospitalization)
  Sender: FDA-Public Use
  Company Number: GB-GENENTECH-240936

PATIENT
  Sex: Female
  Weight: 69 kg

DRUGS (2)
  1. TRASTUZUMAB [Suspect]
     Indication: BREAST CANCER
     Dosage: 8 MG/KG, SINGLE
     Dates: start: 20070207, end: 20070207
  2. TRASTUZUMAB [Suspect]
     Dosage: 6 MG/KG, Q3W

REACTIONS (1)
  - PALPITATIONS [None]
